FAERS Safety Report 10410430 (Version 1)
Quarter: 2014Q3

REPORT INFORMATION
  Report Type: Spontaneous
  Country: JP (occurrence: JP)
  Receive Date: 20140826
  Receipt Date: 20140826
  Transmission Date: 20150326
  Serious: Yes (Death, Hospitalization, Other)
  Sender: FDA-Public Use
  Company Number: PHHY2014JP103528

PATIENT
  Age: 65 Year
  Sex: Female

DRUGS (14)
  1. IRINOTECAN [Suspect]
     Active Substance: IRINOTECAN
     Dosage: 60 MG/BODYX2
     Dates: start: 200804, end: 200808
  2. RADIATION [Suspect]
     Active Substance: RADIATION THERAPY
     Dosage: 60 GY/20FR
     Dates: start: 200704, end: 200705
  3. PACLITAXEL. [Suspect]
     Active Substance: PACLITAXEL
     Dosage: 150 MG/BODY (135 MG/M3X75%)
     Dates: start: 200502, end: 200601
  4. GEMCITABINE [Suspect]
     Active Substance: GEMCITABINE\GEMCITABINE HYDROCHLORIDE
     Dosage: 600 MG/BODY (900 MG/M2X60%)X2
  5. DOCETAXEL [Suspect]
     Active Substance: DOCETAXEL
     Dosage: 50 MG/BODY (80MG/M2X60%)
  6. DOXORUBICIN [Suspect]
     Active Substance: DOXORUBICIN
  7. CARBOPLATIN. [Suspect]
     Active Substance: CARBOPLATIN
     Dosage: 200MG/BODY (AUC 3.5)
     Dates: start: 200502, end: 200601
  8. CISPLATIN. [Suspect]
     Active Substance: CISPLATIN
     Dosage: 30 MG/BODY
     Dates: start: 200704, end: 200705
  9. IRINOTECAN [Suspect]
     Active Substance: IRINOTECAN
     Dosage: 60 MG/BODYX2
     Dates: start: 200607, end: 200610
  10. IRINOTECAN [Suspect]
     Active Substance: IRINOTECAN
     Dosage: 60 MG/BODYX2
     Dates: start: 200705, end: 200709
  11. CARBOPLATIN. [Suspect]
     Active Substance: CARBOPLATIN
     Dosage: 250+150MG/BODY
     Dates: start: 200804, end: 200808
  12. CARBOPLATIN. [Suspect]
     Active Substance: CARBOPLATIN
     Dosage: 300 MG/BODY (AUC 5)
     Dates: start: 200607, end: 200610
  13. CARBOPLATIN. [Suspect]
     Active Substance: CARBOPLATIN
     Dosage: 250+150MG/BODY
     Dates: start: 200705, end: 200709
  14. CYCLOPHOSPHAMIDE. [Suspect]
     Active Substance: CYCLOPHOSPHAMIDE

REACTIONS (9)
  - Cerebral infarction [Fatal]
  - Pancytopenia [Unknown]
  - Metastases to liver [Unknown]
  - Dysplasia [Unknown]
  - Myelodysplastic syndrome [Unknown]
  - Myeloid leukaemia [Unknown]
  - Mass [Unknown]
  - Metastases to adrenals [Unknown]
  - Ovarian cancer recurrent [Unknown]
